FAERS Safety Report 9018139 (Version 1)
Quarter: 2013Q1

REPORT INFORMATION
  Report Type: Spontaneous
  Country: US (occurrence: None)
  Receive Date: 20130110
  Receipt Date: 20130110
  Transmission Date: 20140127
  Serious: No
  Sender: FDA-Public Use
  Company Number: None

PATIENT
  Age: 53 Year
  Sex: Male

DRUGS (5)
  1. VALSARTAN [Suspect]
     Indication: HYPERTENSION
     Dates: start: 20110317, end: 20110607
  2. FISH OIL [Concomitant]
  3. PREVACID [Concomitant]
  4. MVI [Concomitant]
  5. GLUCOSAMINE CHONDROITIN [Concomitant]

REACTIONS (6)
  - Drug-induced liver injury [None]
  - Portal hypertension [None]
  - Aspartate aminotransferase increased [None]
  - Alanine aminotransferase increased [None]
  - Jaundice [None]
  - Fatigue [None]
